FAERS Safety Report 4294887-3 (Version None)
Quarter: 2004Q1

REPORT INFORMATION
  Report Type: 
  Country: None (occurrence: None)
  Receive Date: 20040216
  Receipt Date: 20030211
  Transmission Date: 20041129
  Serious: Yes (Hospitalization, Other)
  Sender: FDA-Public Use
  Company Number: US-GLAXOSMITHKLINE-A0396254A

PATIENT
  Age: 45 Year
  Sex: Female

DRUGS (2)
  1. LAMICTAL [Suspect]
     Indication: BIPOLAR DISORDER
     Dosage: 25MG PER DAY
     Route: 048
     Dates: start: 20030128, end: 20030131
  2. DEPAKOTE [Concomitant]
     Dosage: 1500MG PER DAY
     Route: 048

REACTIONS (4)
  - DYSPHAGIA [None]
  - DYSTONIA [None]
  - TARDIVE DYSKINESIA [None]
  - TIC [None]
